FAERS Safety Report 4487915-3 (Version None)
Quarter: 2004Q4

REPORT INFORMATION
  Report Type: 
  Country: None (occurrence: None)
  Receive Date: 20041022
  Receipt Date: 20041014
  Transmission Date: 20050328
  Serious: Yes (Hospitalization)
  Sender: FDA-Public Use
  Company Number: GBWYE101911OCT04

PATIENT
  Age: 69 Year
  Sex: Male

DRUGS (9)
  1. TACROLIMUS, CONTROL FOR SIROLIMUS (TACROLIMUS, CONTROL FOR SIROLIMUS) [Suspect]
     Indication: PROPHYLAXIS AGAINST TRANSPLANT REJECTION
     Dosage: 2 MG AM, 1.5MG PM ORAL
     Route: 048
     Dates: start: 19980609
  2. SODIUM BICARBONATE IN PLASTIC CONTAINER [Concomitant]
  3. AMLODIPINE [Concomitant]
  4. RANITIDINE [Concomitant]
  5. CALCIUM (CALCIUM) [Concomitant]
  6. CLOPIDOGREL (CLOPIDOGREL) [Concomitant]
  7. FOLIC ACID [Concomitant]
  8. ALFACALCIDOL (ALFACALCIDOL) [Concomitant]
  9. COMBIVENT [Concomitant]

REACTIONS (10)
  - EMPHYSEMA [None]
  - HILAR LYMPHADENOPATHY [None]
  - LUNG INFILTRATION [None]
  - OESOPHAGEAL SQUAMOUS CELL CARCINOMA [None]
  - OESOPHAGEAL STENOSIS [None]
  - PANCREATIC ATROPHY [None]
  - PLEURAL EFFUSION [None]
  - PULMONARY GRANULOMA [None]
  - RENAL ATROPHY [None]
  - RENAL FAILURE CHRONIC [None]
